FAERS Safety Report 5045946-9 (Version None)
Quarter: 2006Q3

REPORT INFORMATION
  Report Type: 
  Country: None (occurrence: None)
  Receive Date: 20060710
  Receipt Date: 20060703
  Transmission Date: 20061208
  Serious: No
  Sender: FDA-Public Use
  Company Number: DE-JNJFOC-20060602202

PATIENT
  Age: 77 Year
  Sex: Female

DRUGS (1)
  1. ZALDIAR [Suspect]
     Indication: DRUG USE FOR UNKNOWN INDICATION
     Route: 048

REACTIONS (2)
  - SWELLING FACE [None]
  - SWOLLEN TONGUE [None]
